FAERS Safety Report 6844453-8 (Version None)
Quarter: 2010Q2

REPORT INFORMATION
  Report Type: 
  Country: None (occurrence: None)
  Receive Date: 20100629
  Receipt Date: 20100514
  Transmission Date: 20101027
  Serious: No
  Sender: FDA-Public Use
  Company Number: US-WYE-H15174610

PATIENT
  Age: 77 Year
  Sex: Female

DRUGS (3)
  1. PRISTIQ [Suspect]
     Indication: STRESS
     Dosage: 75 MG 1X PER 1 DAY
     Dates: start: 20100501
  2. ATIVAN [Concomitant]
  3. THYROID TAB [Concomitant]

REACTIONS (1)
  - WEIGHT INCREASED [None]
